FAERS Safety Report 4464337-2 (Version None)
Quarter: 2004Q4

REPORT INFORMATION
  Report Type: 
  Country: None (occurrence: None)
  Receive Date: 20041001
  Receipt Date: 20040922
  Transmission Date: 20050328
  Serious: Yes (Hospitalization)
  Sender: FDA-Public Use
  Company Number: FR-MERCK-0409USA01949

PATIENT
  Age: 92 Year
  Sex: Female

DRUGS (8)
  1. MIXTARD HUMAN 70/30 [Concomitant]
     Indication: DIABETES MELLITUS INSULIN-DEPENDENT
     Route: 058
  2. MIXTARD HUMAN 70/30 [Concomitant]
     Route: 058
  3. IKOREL [Suspect]
     Route: 048
     Dates: end: 20040603
  4. MOPRAL (OMEPRAZOLE) [Suspect]
     Route: 048
     Dates: end: 20040603
  5. COVERSYL [Suspect]
     Indication: HYPERTENSION
     Route: 048
     Dates: end: 20040603
  6. TRANSIPEG [Suspect]
     Route: 048
     Dates: end: 20040619
  7. ZOCOR [Suspect]
     Indication: HYPERLIPIDAEMIA
     Route: 048
     Dates: end: 20040603
  8. IMOVANE [Concomitant]
     Route: 048

REACTIONS (2)
  - HYPERKALAEMIA [None]
  - HYPONATRAEMIA [None]
